FAERS Safety Report 12468144 (Version 2)
Quarter: 2016Q2

REPORT INFORMATION
  Report Type: Spontaneous
  Country: US (occurrence: US)
  Receive Date: 20160615
  Receipt Date: 20160630
  Transmission Date: 20160815
  Serious: No
  Sender: FDA-Public Use
  Company Number: US-VERTEX PHARMACEUTICALS-2016-003774

PATIENT
  Age: 48 Year
  Sex: Male
  Weight: 79 kg

DRUGS (8)
  1. CREON 24 [Concomitant]
     Active Substance: AMYLASE\LIPASE\PROTEASE
  2. AMITRIPTYLINE [Concomitant]
     Active Substance: AMITRIPTYLINE
  3. PULMOZYME [Concomitant]
     Active Substance: DORNASE ALFA
  4. AQUADEKS [Concomitant]
     Active Substance: MINERALS\VITAMINS
  5. ADVAIR HFA [Concomitant]
     Active Substance: FLUTICASONE PROPIONATE\SALMETEROL XINAFOATE
  6. FLOVENT [Concomitant]
     Active Substance: FLUTICASONE PROPIONATE
  7. PROVENTIL [Concomitant]
     Active Substance: ALBUTEROL
  8. ORKAMBI [Suspect]
     Active Substance: IVACAFTOR\LUMACAFTOR
     Indication: CYSTIC FIBROSIS
     Dosage: 2 DF (400/250 MG), BID
     Route: 048
     Dates: start: 20160608

REACTIONS (6)
  - Cough [Unknown]
  - Dyspnoea [Unknown]
  - Nausea [Unknown]
  - Decreased appetite [Unknown]
  - Weight decreased [Unknown]
  - Respiratory tract congestion [Unknown]

NARRATIVE: CASE EVENT DATE: 20160608
